FAERS Safety Report 12951598 (Version 2)
Quarter: 2017Q1

REPORT INFORMATION
  Report Type: Spontaneous
  Country: US (occurrence: US)
  Receive Date: 20161117
  Receipt Date: 20170316
  Transmission Date: 20170428
  Serious: Yes (Other)
  Sender: FDA-Public Use
  Company Number: US-ELI_LILLY_AND_COMPANY-US201607012866

PATIENT
  Sex: Female

DRUGS (3)
  1. CYMBALTA [Suspect]
     Active Substance: DULOXETINE HYDROCHLORIDE
     Indication: MAJOR DEPRESSION
     Dosage: 30 MG, QD
     Route: 065
     Dates: start: 20111115, end: 20111130
  2. CYMBALTA [Suspect]
     Active Substance: DULOXETINE HYDROCHLORIDE
     Dosage: 30 MG, QD
     Route: 065
     Dates: start: 20120305, end: 20120605
  3. CYMBALTA [Suspect]
     Active Substance: DULOXETINE HYDROCHLORIDE
     Dosage: 60 MG, QD
     Route: 065
     Dates: start: 20111130, end: 20120305

REACTIONS (22)
  - Confusional state [Unknown]
  - Intentional product misuse [Unknown]
  - Tremor [Unknown]
  - Hypoaesthesia [Unknown]
  - Muscle spasms [Unknown]
  - Insomnia [Unknown]
  - Vertigo [Unknown]
  - Drug withdrawal syndrome [Unknown]
  - Fatigue [Unknown]
  - Dizziness [Unknown]
  - Sensory disturbance [Unknown]
  - Speech disorder [Unknown]
  - Dysphoria [Unknown]
  - Headache [Unknown]
  - Suicidal ideation [Unknown]
  - Agitation [Unknown]
  - Irritability [Unknown]
  - Lethargy [Unknown]
  - Paraesthesia [Unknown]
  - Pruritus [Unknown]
  - Feeling abnormal [Unknown]
  - Memory impairment [Unknown]
